FAERS Safety Report 12692649 (Version 1)
Quarter: 2016Q3

REPORT INFORMATION
  Report Type: Spontaneous
  Country: BR (occurrence: BR)
  Receive Date: 20160829
  Receipt Date: 20160829
  Transmission Date: 20161109
  Serious: Yes (Other)
  Sender: FDA-Public Use
  Company Number: BR-BRISTOL-MYERS SQUIBB COMPANY-BMS-2016-068971

PATIENT
  Age: 60 Year
  Sex: Male

DRUGS (1)
  1. SPRYCEL [Suspect]
     Active Substance: DASATINIB
     Indication: CHRONIC MYELOID LEUKAEMIA
     Route: 065

REACTIONS (6)
  - Pleural effusion [Recovered/Resolved]
  - Haemorrhoid operation [Unknown]
  - Haemorrhoids [Recovered/Resolved]
  - Haemorrhage [Recovered/Resolved]
  - Colitis [Recovered/Resolved]
  - Aspiration pleural cavity [Unknown]
